FAERS Safety Report 16107559 (Version 1)
Quarter: 2019Q1

REPORT INFORMATION
  Report Type: Spontaneous
  Country: CN (occurrence: CN)
  Receive Date: 20190322
  Receipt Date: 20190322
  Transmission Date: 20190418
  Serious: Yes (Hospitalization)
  Sender: FDA-Public Use
  Company Number: CN-ELI_LILLY_AND_COMPANY-CN201903010612

PATIENT
  Age: 79 Year
  Sex: Female
  Weight: 80 kg

DRUGS (2)
  1. HUMALOG MIX50/50 [Suspect]
     Active Substance: INSULIN LISPRO
     Dosage: 16 IU, EACH NIGHT
     Route: 058
     Dates: start: 2015
  2. HUMALOG MIX50/50 [Suspect]
     Active Substance: INSULIN LISPRO
     Indication: DIABETES MELLITUS
     Dosage: 24 IU, EACH MORNING
     Route: 058
     Dates: start: 2015

REACTIONS (1)
  - Blood glucose increased [Unknown]
